FAERS Safety Report 6974294 (Version 3)
Quarter: 2018Q1

REPORT INFORMATION
  Report Type: Spontaneous
  Country: US (occurrence: US)
  Receive Date: 20090421
  Receipt Date: 20180216
  Transmission Date: 20180509
  Serious: Yes (Other)
  Sender: FDA-Public Use
  Company Number: US-ASTRAZENECA-2004UW25179

PATIENT
  Age: 84 Year
  Sex: Female
  Weight: 57.2 kg

DRUGS (12)
  1. OMEPRAZOLE. [Suspect]
     Active Substance: OMEPRAZOLE
     Indication: GASTROOESOPHAGEAL REFLUX DISEASE
     Route: 048
  2. OMEPRAZOLE. [Suspect]
     Active Substance: OMEPRAZOLE
     Indication: GASTROOESOPHAGEAL REFLUX DISEASE
     Route: 048
  3. VITAMINS [Concomitant]
     Active Substance: VITAMINS
  4. ARIMIDEX [Suspect]
     Active Substance: ANASTROZOLE
     Indication: OESTROGEN RECEPTOR POSITIVE BREAST CANCER
     Route: 048
     Dates: start: 2003, end: 2013
  5. ACTONEL [Concomitant]
     Active Substance: RISEDRONATE SODIUM
     Dates: start: 200401
  6. HYDROCHLOROTHIAZIDE. [Concomitant]
     Active Substance: HYDROCHLOROTHIAZIDE
     Indication: HYPERTENSION
     Dosage: STARTED RECENTLY
  7. ARICEPT [Concomitant]
     Active Substance: DONEPEZIL HYDROCHLORIDE
  8. OMEPRAZOLE. [Suspect]
     Active Substance: OMEPRAZOLE
     Indication: GASTROOESOPHAGEAL REFLUX DISEASE
     Route: 048
  9. ALENDRONATE SODIUM. [Concomitant]
     Active Substance: ALENDRONATE SODIUM
     Indication: OSTEOPOROSIS
     Dates: start: 2002
  10. METOPROLOL TARTRATE. [Suspect]
     Active Substance: METOPROLOL TARTRATE
     Route: 048
  11. OMEPRAZOLE. [Suspect]
     Active Substance: OMEPRAZOLE
     Indication: GASTROOESOPHAGEAL REFLUX DISEASE
     Route: 048
  12. LISINOPRIL. [Concomitant]
     Active Substance: LISINOPRIL

REACTIONS (32)
  - Pulmonary hypertension [Unknown]
  - Gastrooesophageal reflux disease [Unknown]
  - Hypothyroidism [Unknown]
  - Palpitations [Unknown]
  - Grip strength decreased [Unknown]
  - Micturition urgency [Recovering/Resolving]
  - Osteopenia [Unknown]
  - Sensory disturbance [Unknown]
  - Asthenia [Not Recovered/Not Resolved]
  - Hypertension [Unknown]
  - Alopecia [Unknown]
  - Oestrogen receptor positive breast cancer [Unknown]
  - Body height decreased [Unknown]
  - Cluster headache [Unknown]
  - Atrial fibrillation [Unknown]
  - Fall [Unknown]
  - Total lung capacity decreased [Unknown]
  - Dizziness [Unknown]
  - Joint swelling [Unknown]
  - Depression [Unknown]
  - Lung hyperinflation [Unknown]
  - Cardiac failure [Unknown]
  - Decreased activity [Unknown]
  - Insomnia [Recovered/Resolved]
  - Fluid retention [Unknown]
  - Dyspnoea exertional [Unknown]
  - Oxygen saturation decreased [Unknown]
  - Dyspnoea [Unknown]
  - Chronic respiratory failure [Unknown]
  - Burning sensation [Recovering/Resolving]
  - Fatigue [Not Recovered/Not Resolved]
  - Hot flush [Not Recovered/Not Resolved]

NARRATIVE: CASE EVENT DATE: 2003
